FAERS Safety Report 6386487-6 (Version None)
Quarter: 2009Q4

REPORT INFORMATION
  Report Type: 
  Country: None (occurrence: None)
  Receive Date: 20091002
  Receipt Date: 20090610
  Transmission Date: 20100525
  Serious: No
  Sender: FDA-Public Use
  Company Number: US-ASTRAZENECA-2009UW14849

PATIENT
  Sex: Female
  Weight: 77.1 kg

DRUGS (9)
  1. ARIMIDEX [Suspect]
     Route: 048
     Dates: start: 20021001
  2. DIOVAN HCT [Concomitant]
  3. PREVACID [Concomitant]
  4. CITRACAL [Concomitant]
  5. RECLAST [Concomitant]
  6. DOXAZOSIN MESYL [Concomitant]
  7. MULTI-VITAMIN [Concomitant]
  8. VITAMIN D [Concomitant]
  9. ASPIRIN [Concomitant]

REACTIONS (1)
  - PAIN IN EXTREMITY [None]
